FAERS Safety Report 8976623 (Version 1)
Quarter: 2012Q4

REPORT INFORMATION
  Report Type: 
  Country: DE (occurrence: DE)
  Receive Date: 20121220
  Receipt Date: 20121220
  Transmission Date: 20130627
  Serious: Yes (Hospitalization, Other)
  Sender: FDA-Public Use
  Company Number: DE-ELI_LILLY_AND_COMPANY-DE201212004381

PATIENT
  Age: 70 Year
  Sex: Female

DRUGS (4)
  1. FORSTEO [Suspect]
     Indication: OSTEOPOROSIS
     Dosage: UNK, qd
     Route: 058
     Dates: start: 20111213
  2. CORTISONE [Concomitant]
     Dosage: 5 mg, unknown
     Route: 065
  3. FISH OIL [Concomitant]
     Dosage: UNK, unknown
     Route: 065
  4. MAGNESIUM [Concomitant]
     Dosage: UNK, unknown
     Route: 065

REACTIONS (3)
  - Heart rate increased [Unknown]
  - Blood pressure increased [Unknown]
  - Loss of consciousness [Unknown]
